FAERS Safety Report 11216558 (Version 2)
Quarter: 2015Q3

REPORT INFORMATION
  Report Type: Spontaneous
  Country: US (occurrence: US)
  Receive Date: 20150624
  Receipt Date: 20150708
  Transmission Date: 20151125
  Serious: Yes (Hospitalization)
  Sender: FDA-Public Use
  Company Number: US-PERRIGO-15US006252

PATIENT
  Age: 92 Year
  Sex: Female

DRUGS (1)
  1. MAGNESIUM HYDROXIDE 80 MG/ML CHERRY 949 [Suspect]
     Active Substance: MAGNESIUM HYDROXIDE
     Indication: PRODUCT USED FOR UNKNOWN INDICATION
     Dosage: UNK
     Route: 048

REACTIONS (6)
  - Hypokalaemia [Unknown]
  - Dyspnoea [Unknown]
  - Wheezing [Unknown]
  - Hyponatraemia [Unknown]
  - Cardiac failure congestive [Unknown]
  - Fluid retention [Unknown]

NARRATIVE: CASE EVENT DATE: 201506
